FAERS Safety Report 23256188 (Version 1)
Quarter: 2023Q4

REPORT INFORMATION
  Report Type: Spontaneous
  Country: US (occurrence: US)
  Receive Date: 20231204
  Receipt Date: 20231204
  Transmission Date: 20240109
  Serious: No
  Sender: FDA-Public Use
  Company Number: US-SA-SAC20231122001266

PATIENT
  Age: 26 Year
  Sex: Male

DRUGS (1)
  1. DUPIXENT [Suspect]
     Active Substance: DUPILUMAB
     Indication: Angina pectoris
     Dosage: 300 MG, QOW
     Route: 058
     Dates: start: 20231031

REACTIONS (5)
  - Myalgia [Recovering/Resolving]
  - Discomfort [Recovering/Resolving]
  - Sleep disorder [Recovering/Resolving]
  - Rash [Recovering/Resolving]
  - Product use in unapproved indication [Unknown]

NARRATIVE: CASE EVENT DATE: 20231031
